FAERS Safety Report 18154147 (Version 1)
Quarter: 2020Q3

REPORT INFORMATION
  Report Type: Spontaneous
  Country: NO (occurrence: NO)
  Receive Date: 20200816
  Receipt Date: 20200816
  Transmission Date: 20201103
  Serious: Yes (Hospitalization)
  Sender: FDA-Public Use
  Company Number: NO-ASTRAZENECA-2020SF02471

PATIENT
  Age: 64 Year
  Sex: Male

DRUGS (1)
  1. FORXIGA [Suspect]
     Active Substance: DAPAGLIFLOZIN
     Indication: TYPE 2 DIABETES MELLITUS
     Route: 048
     Dates: start: 20190301, end: 20200726

REACTIONS (2)
  - Toe amputation [Recovered/Resolved with Sequelae]
  - Leg amputation [Recovered/Resolved with Sequelae]

NARRATIVE: CASE EVENT DATE: 20200701
